FAERS Safety Report 21666518 (Version 1)
Quarter: 2022Q4

REPORT INFORMATION
  Report Type: Spontaneous
  Country: US (occurrence: BR)
  Receive Date: 20221201
  Receipt Date: 20221201
  Transmission Date: 20230112
  Serious: No
  Sender: FDA-Public Use
  Company Number: US-ABBVIE-4215962

PATIENT
  Age: 60 Year
  Sex: Female
  Weight: 60 kg

DRUGS (5)
  1. ANDROGEL [Suspect]
     Active Substance: TESTOSTERONE
     Indication: Menopause
     Dosage: APPLIED ON HAIRLESS SKIN - ON SHOULDERS AND ASS (1 IN 1 D)
     Route: 062
     Dates: start: 202210
  2. ANDROGEL [Suspect]
     Active Substance: TESTOSTERONE
     Indication: Menopause
     Dosage: APPLIED ON HAIRLESS SKIN - ON SHOULDERS AND ASS (1 IN 1 D)
     Route: 062
     Dates: start: 2019, end: 2020
  3. LATANOPROST [Concomitant]
     Active Substance: LATANOPROST
     Indication: Glaucoma
     Route: 047
  4. MAGNESIUM [Concomitant]
     Active Substance: MAGNESIUM
     Indication: Cardiovascular event prophylaxis
     Dosage: 1 AT MORNING AND 1 AT NIGHT
     Route: 048
     Dates: start: 2021
  5. DPREV [Concomitant]
     Indication: Vitamin D deficiency
     Route: 048
     Dates: start: 202210

REACTIONS (2)
  - Off label use [Unknown]
  - Product packaging quantity issue [Unknown]

NARRATIVE: CASE EVENT DATE: 20190101
